FAERS Safety Report 23895556 (Version 1)
Quarter: 2024Q2

REPORT INFORMATION
  Report Type: Spontaneous
  Country: US (occurrence: None)
  Receive Date: 20240523
  Receipt Date: 20240523
  Transmission Date: 20240715
  Serious: Yes (Other)
  Sender: FDA-Public Use
  Company Number: None

PATIENT
  Age: 73 Year
  Sex: Female
  Weight: 64.8 kg

DRUGS (2)
  1. LETROZOLE [Suspect]
     Active Substance: LETROZOLE
     Indication: Breast cancer
     Dates: start: 20240402, end: 20240520
  2. LETROZOLE [Concomitant]

REACTIONS (1)
  - Carpal tunnel syndrome [None]

NARRATIVE: CASE EVENT DATE: 20240520
